FAERS Safety Report 9235722 (Version 4)
Quarter: 2014Q1

REPORT INFORMATION
  Report Type: Spontaneous
  Country: US (occurrence: US)
  Receive Date: 20130417
  Receipt Date: 20140313
  Transmission Date: 20141002
  Serious: Yes (Hospitalization, Other)
  Sender: FDA-Public Use
  Company Number: US-009507513-1304USA005355

PATIENT
  Sex: Male
  Weight: 92.52 kg

DRUGS (2)
  1. PROPECIA [Suspect]
     Indication: ANDROGENETIC ALOPECIA
     Dosage: 1 MG, UNK
     Route: 048
     Dates: start: 20020521, end: 20030611
  2. PROPECIA [Suspect]
     Dosage: 1 MG, UNK
     Route: 048
     Dates: start: 20030715, end: 20040223

REACTIONS (19)
  - Prostate cancer [Unknown]
  - Radical prostatectomy [Unknown]
  - Cognitive disorder [Not Recovered/Not Resolved]
  - Skin disorder [Unknown]
  - Incisional hernia [Unknown]
  - Essential hypertension [Unknown]
  - Sperm concentration decreased [Unknown]
  - Anaemia [Unknown]
  - Gout [Not Recovered/Not Resolved]
  - Osteoarthritis [Unknown]
  - Back pain [Unknown]
  - Umbilical hernia [Unknown]
  - Sexual dysfunction [Not Recovered/Not Resolved]
  - Erectile dysfunction [Unknown]
  - Benign prostatic hyperplasia [Unknown]
  - Erectile dysfunction [Unknown]
  - Fatigue [Unknown]
  - Urinary tract obstruction [Unknown]
  - Prostatic specific antigen increased [Unknown]
